FAERS Safety Report 17504919 (Version 1)
Quarter: 2020Q1

REPORT INFORMATION
  Report Type: Spontaneous
  Country: AT (occurrence: AT)
  Receive Date: 20200305
  Receipt Date: 20200305
  Transmission Date: 20200409
  Serious: Yes (Hospitalization)
  Sender: FDA-Public Use
  Company Number: AT-B.I. PHARMACEUTICALS,INC./RIDGEFIELD-2020-BI-011786

PATIENT
  Sex: Male

DRUGS (5)
  1. OFEV [Suspect]
     Active Substance: NINTEDANIB
     Indication: IDIOPATHIC PULMONARY FIBROSIS
     Route: 065
     Dates: start: 20180824, end: 201902
  2. OFEV [Suspect]
     Active Substance: NINTEDANIB
     Indication: SERONEGATIVE ARTHRITIS
     Route: 065
     Dates: start: 20190212
  3. OFEV [Suspect]
     Active Substance: NINTEDANIB
     Route: 065
  4. OFEV [Suspect]
     Active Substance: NINTEDANIB
     Route: 065
  5. OXYGEN. [Concomitant]
     Active Substance: OXYGEN
     Indication: IDIOPATHIC PULMONARY FIBROSIS
     Dosage: DOSE: 3L/MIN
     Route: 065
     Dates: start: 20180824

REACTIONS (6)
  - Arthralgia [Recovering/Resolving]
  - Off label use [Unknown]
  - Dyspnoea exertional [Unknown]
  - Dyspnoea [Unknown]
  - Diarrhoea [Unknown]
  - Joint swelling [Recovering/Resolving]

NARRATIVE: CASE EVENT DATE: 20190212
